FAERS Safety Report 25685565 (Version 1)
Quarter: 2025Q3

REPORT INFORMATION
  Report Type: Spontaneous
  Country: US (occurrence: US)
  Receive Date: 20250815
  Receipt Date: 20250815
  Transmission Date: 20251020
  Serious: No
  Sender: BAYER HEALTHCARE PHARMACEUTICALS INC.
  Company Number: US-BAYER-2025A104787

PATIENT
  Sex: Male

DRUGS (2)
  1. NUBEQA [Suspect]
     Active Substance: DAROLUTAMIDE
     Indication: Prostate cancer
     Dosage: 1200 MG/DAY
     Dates: start: 20250618, end: 20250724
  2. LUPRON [Concomitant]
     Active Substance: LEUPROLIDE ACETATE
     Indication: Prostate cancer
     Dates: start: 20250618, end: 20250724

REACTIONS (7)
  - Tremor [Recovered/Resolved]
  - Tachypnoea [Unknown]
  - Chills [Recovered/Resolved]
  - Brain fog [Recovered/Resolved]
  - Fatigue [None]
  - Asthenia [None]
  - Thought blocking [None]

NARRATIVE: CASE EVENT DATE: 20250715
